FAERS Safety Report 6093590-7 (Version None)
Quarter: 2009Q1

REPORT INFORMATION
  Report Type: 
  Country: None (occurrence: None)
  Receive Date: 20090226
  Receipt Date: 20090224
  Transmission Date: 20090719
  Serious: Yes (Other)
  Sender: FDA-Public Use
  Company Number: CA-WYE-H08276409

PATIENT
  Age: 8 Year
  Sex: Female

DRUGS (1)
  1. CHILDREN'S ADVIL [Suspect]
     Indication: PYREXIA
     Dosage: UNKNOWN DOSE X 1
     Route: 048
     Dates: start: 20090201, end: 20090201

REACTIONS (4)
  - DYSPNOEA [None]
  - EYE SWELLING [None]
  - RASH [None]
  - SWELLING [None]
